FAERS Safety Report 12207849 (Version 1)
Quarter: 2016Q1

REPORT INFORMATION
  Report Type: Spontaneous
  Country: IE (occurrence: IE)
  Receive Date: 20160324
  Receipt Date: 20160324
  Transmission Date: 20160526
  Serious: Yes (Other)
  Sender: FDA-Public Use
  Company Number: IE-JNJFOC-20160319423

PATIENT
  Age: 29 Year
  Sex: Female

DRUGS (3)
  1. DESOGESTREL [Concomitant]
     Active Substance: DESOGESTREL
     Route: 065
  2. STELARA [Suspect]
     Active Substance: USTEKINUMAB
     Indication: PSORIASIS
     Route: 058
     Dates: start: 20151224
  3. FLUNARIZINE [Concomitant]
     Active Substance: FLUNARIZINE
     Route: 065

REACTIONS (2)
  - Influenza [Recovered/Resolved]
  - Sinusitis [Recovered/Resolved]

NARRATIVE: CASE EVENT DATE: 201601
